FAERS Safety Report 5843577-1 (Version None)
Quarter: 2008Q3

REPORT INFORMATION
  Report Type: 
  Country: None (occurrence: None)
  Receive Date: 20080813
  Receipt Date: 20080507
  Transmission Date: 20090109
  Serious: No
  Sender: FDA-Public Use
  Company Number: A0726789A

PATIENT
  Age: 87 Year
  Sex: Male

DRUGS (8)
  1. COREG CR [Suspect]
     Indication: DRUG USE FOR UNKNOWN INDICATION
     Dosage: 10MG PER DAY
     Route: 048
     Dates: start: 20080501, end: 20080505
  2. FINASTERIDE [Concomitant]
  3. MISOPROSTOL [Concomitant]
  4. BRIMONIDINE TARTRATE [Concomitant]
  5. SPIRIVA [Concomitant]
  6. FORADIL [Concomitant]
  7. DIOVAN [Concomitant]
  8. XALATAN [Concomitant]

REACTIONS (4)
  - BALANCE DISORDER [None]
  - DIZZINESS [None]
  - FATIGUE [None]
  - MUSCLE SPASMS [None]
